FAERS Safety Report 23409080 (Version 1)
Quarter: 2024Q1

REPORT INFORMATION
  Report Type: Spontaneous
  Country: DE (occurrence: DE)
  Receive Date: 20240117
  Receipt Date: 20240117
  Transmission Date: 20240409
  Serious: Yes (Other)
  Sender: FDA-Public Use
  Company Number: DE-STADA-01184420

PATIENT
  Sex: Male

DRUGS (1)
  1. MIRTAZAPINE [Suspect]
     Active Substance: MIRTAZAPINE
     Indication: Tinnitus
     Dosage: 7.5 MILLIGRAM, QD
     Route: 048

REACTIONS (2)
  - Pain [Not Recovered/Not Resolved]
  - Off label use [Unknown]
